FAERS Safety Report 24027932 (Version 1)
Quarter: 2024Q2

REPORT INFORMATION
  Report Type: Spontaneous
  Country: DE (occurrence: DE)
  Receive Date: 20240628
  Receipt Date: 20240628
  Transmission Date: 20240715
  Serious: Yes (Other)
  Sender: FDA-Public Use
  Company Number: DE-002147023-NVSC2024DE130136

PATIENT
  Sex: Female

DRUGS (2)
  1. COSENTYX [Suspect]
     Active Substance: SECUKINUMAB
     Indication: Psoriasis
     Dosage: 300 MG, QMO
     Route: 065
     Dates: start: 20240409
  2. COSENTYX [Suspect]
     Active Substance: SECUKINUMAB
     Indication: Psoriatic arthropathy

REACTIONS (16)
  - Diverticulitis [Unknown]
  - Blepharitis [Not Recovered/Not Resolved]
  - Eye swelling [Not Recovered/Not Resolved]
  - Ocular hyperaemia [Not Recovered/Not Resolved]
  - Eye pain [Not Recovered/Not Resolved]
  - Visual impairment [Not Recovered/Not Resolved]
  - Lacrimal disorder [Not Recovered/Not Resolved]
  - Peripheral swelling [Not Recovered/Not Resolved]
  - Arthropathy [Unknown]
  - Fatigue [Unknown]
  - Headache [Unknown]
  - Nodule [Unknown]
  - Liver function test abnormal [Unknown]
  - Arthropod bite [Unknown]
  - Gastrointestinal disorder [Unknown]
  - Drug ineffective [Unknown]

NARRATIVE: CASE EVENT DATE: 20240101
